FAERS Safety Report 20394284 (Version 1)
Quarter: 2022Q1

REPORT INFORMATION
  Report Type: Spontaneous
  Country: DE (occurrence: DE)
  Receive Date: 20220129
  Receipt Date: 20220129
  Transmission Date: 20220423
  Serious: Yes (Hospitalization)
  Sender: FDA-Public Use
  Company Number: None

PATIENT
  Age: 47 Year
  Sex: Male
  Weight: 140 kg

DRUGS (17)
  1. ETOPOSIDE [Suspect]
     Active Substance: ETOPOSIDE
     Indication: Product used for unknown indication
  2. DOXORUBICIN [Suspect]
     Active Substance: DOXORUBICIN
     Indication: Product used for unknown indication
  3. BLEOMYCIN [Suspect]
     Active Substance: BLEOMYCIN SULFATE
     Indication: Product used for unknown indication
  4. CYCLOPHOSPHAMIDE [Suspect]
     Active Substance: CYCLOPHOSPHAMIDE
     Indication: Product used for unknown indication
  5. PROCARBAZINE [Suspect]
     Active Substance: PROCARBAZINE
     Indication: Product used for unknown indication
     Dosage: 200 MG, FOUR TABLETS UNTIL JULY SIXTH
     Route: 048
  6. PREDNISOLONE [Suspect]
     Active Substance: PREDNISOLONE
     Indication: Product used for unknown indication
     Dosage: 75 MG, ONE TABLET UNTIL THE THIRTEENTH OF JULY
     Route: 048
  7. RAMIPRIL [Concomitant]
     Active Substance: RAMIPRIL
     Dosage: 5 MG, 1-0-0-0
     Route: 048
  8. ALLOPURINOL [Concomitant]
     Active Substance: ALLOPURINOL
     Dosage: 300 MG, 1-0-0-0
     Route: 048
  9. SULFAMETHOXAZOLE\TRIMETHOPRIM [Concomitant]
     Active Substance: SULFAMETHOXAZOLE\TRIMETHOPRIM
     Dosage: 960 MG, MONDAY, WEDNESDAY FRIDAY ONE TABLET
     Route: 048
  10. ALENDRONATE SODIUM\CALCIUM CARBONATE\CHOLECALCIFEROL [Concomitant]
     Active Substance: ALENDRONATE SODIUM\CALCIUM CARBONATE\CHOLECALCIFEROL
     Dosage: 0-0-2-0
     Route: 048
  11. METAMIZOL [Concomitant]
     Active Substance: METAMIZOLE SODIUM
     Dosage: 500 MG, 2-2-2-2
     Route: 048
  12. Oxycodone, Naloxone [Concomitant]
     Dosage: 5/10 MG, 2-0-2-0
     Route: 048
  13. DULOXETINE [Concomitant]
     Active Substance: DULOXETINE
     Dosage: 30 MG, 4-0-0-0
     Route: 048
  14. QUETIAPINE [Concomitant]
     Active Substance: QUETIAPINE
     Dosage: 50 MG, 0-0-1-0
     Route: 048
  15. TINZAPARIN [Concomitant]
     Active Substance: TINZAPARIN
     Dosage: 20000 IE, 1-0-0-0,PRE-FILLED SYRINGES
     Route: 058
  16. AMLODIPINE [Concomitant]
     Active Substance: AMLODIPINE BESYLATE
     Dosage: 5 MG, 1-0-1-0
     Route: 048
  17. METOPROLOL [Concomitant]
     Active Substance: METOPROLOL
     Dosage: 95 MG, 1-0-1-0
     Route: 048

REACTIONS (3)
  - Fatigue [Unknown]
  - Purpura [Unknown]
  - Erythema [Unknown]
